FAERS Safety Report 20393532 (Version 4)
Quarter: 2022Q2

REPORT INFORMATION
  Report Type: Spontaneous
  Country: JP (occurrence: JP)
  Receive Date: 20220128
  Receipt Date: 20220602
  Transmission Date: 20220721
  Serious: Yes (Death, Other)
  Sender: FDA-Public Use
  Company Number: JP-DSJP-DSJ-2022-102825AA

PATIENT
  Age: 74 Year
  Sex: Male
  Weight: 67.7 kg

DRUGS (8)
  1. ENHERTU [Suspect]
     Active Substance: FAM-TRASTUZUMAB DERUXTECAN-NXKI
     Indication: HER2 positive gastric cancer
     Dosage: 6.4 MG/KG, ONCE EVERY 3 WK
     Route: 041
     Dates: start: 20211207, end: 20211207
  2. ENHERTU [Suspect]
     Active Substance: FAM-TRASTUZUMAB DERUXTECAN-NXKI
     Dosage: 6.4 MG/KG, ONCE EVERY 3 WK
     Route: 041
     Dates: start: 20220104, end: 20220104
  3. FEBUXOSTAT [Concomitant]
     Active Substance: FEBUXOSTAT
     Indication: Hyperuricaemia
     Dosage: 10 MG, QD
     Route: 048
     Dates: start: 20220104
  4. AZOSEMIDE [Concomitant]
     Active Substance: AZOSEMIDE
     Indication: Ascites
     Dosage: 60 MG, QD
     Route: 048
     Dates: start: 20210720
  5. FUROSEMIDE [Concomitant]
     Active Substance: FUROSEMIDE
     Indication: Ascites
     Dosage: 20 MG, QD
     Route: 048
     Dates: start: 20210730
  6. SAMSCA [Concomitant]
     Active Substance: TOLVAPTAN
     Indication: Ascites
     Dosage: 7.5 MG, QD
     Route: 048
     Dates: start: 20211209
  7. VONOPRAZAN FUMARATE [Concomitant]
     Active Substance: VONOPRAZAN FUMARATE
     Indication: Gastrointestinal haemorrhage
     Dosage: 10 MG, QD
     Route: 048
     Dates: start: 20211213
  8. FERROUS FUMARATE [Concomitant]
     Active Substance: FERROUS FUMARATE
     Indication: Anaemia
     Dosage: 100 MG, QD
     Route: 048
     Dates: start: 20211213

REACTIONS (2)
  - Febrile neutropenia [Fatal]
  - Disease progression [Fatal]

NARRATIVE: CASE EVENT DATE: 20220121
